FAERS Safety Report 5843575-8 (Version None)
Quarter: 2008Q3

REPORT INFORMATION
  Report Type: 
  Country: None (occurrence: None)
  Receive Date: 20080813
  Receipt Date: 20080516
  Transmission Date: 20090109
  Serious: No
  Sender: FDA-Public Use
  Company Number: A0726637A

PATIENT
  Age: 57 Year
  Sex: Female

DRUGS (1)
  1. COREG CR [Suspect]
     Indication: DRUG USE FOR UNKNOWN INDICATION
     Dosage: 10MG UNKNOWN
     Route: 065
     Dates: end: 20080508

REACTIONS (1)
  - ALOPECIA [None]
